FAERS Safety Report 15455436 (Version 1)
Quarter: 2018Q4

REPORT INFORMATION
  Report Type: Spontaneous
  Country: US (occurrence: US)
  Receive Date: 20181002
  Receipt Date: 20181002
  Transmission Date: 20190204
  Serious: Yes (Death, Hospitalization, Other)
  Sender: FDA-Public Use
  Company Number: US-GLAXOSMITHKLINE-US2018177021

PATIENT
  Age: 74 Year
  Sex: Female

DRUGS (2)
  1. VENTOLIN HFA [Suspect]
     Active Substance: ALBUTEROL SULFATE
     Indication: PRODUCT USED FOR UNKNOWN INDICATION
     Dosage: 1 - 2 PUFFS, FOUR TIMES DAILY, AS NEEDED
     Route: 055
  2. INCRUSE ELLIPTA [Suspect]
     Active Substance: UMECLIDINIUM BROMIDE
     Indication: PRODUCT USED FOR UNKNOWN INDICATION
     Dosage: 1 PUFF(S), QD
     Route: 055

REACTIONS (10)
  - Death [Fatal]
  - Radiotherapy [Unknown]
  - Terminal state [Unknown]
  - Lung cancer metastatic [Unknown]
  - Fall [Unknown]
  - Lung neoplasm malignant [Unknown]
  - Pelvic fracture [Unknown]
  - Hospitalisation [Unknown]
  - Metastases to spine [Unknown]
  - Metastases to liver [Unknown]

NARRATIVE: CASE EVENT DATE: 2017
